FAERS Safety Report 5713628-3 (Version None)
Quarter: 2008Q2

REPORT INFORMATION
  Report Type: 
  Country: None (occurrence: None)
  Receive Date: 20080422
  Receipt Date: 20080414
  Transmission Date: 20081010
  Serious: Yes (Other)
  Sender: FDA-Public Use
  Company Number: JP-MERCK-0804USA03540

PATIENT
  Age: 76 Year
  Sex: Female

DRUGS (2)
  1. HYZAAR [Suspect]
     Indication: HYPERTENSION
     Route: 048
     Dates: start: 20080313, end: 20080320
  2. DIOVAN [Concomitant]
     Indication: HYPERTENSION
     Route: 048

REACTIONS (1)
  - DIZZINESS POSTURAL [None]
